FAERS Safety Report 19907936 (Version 1)
Quarter: 2021Q3

REPORT INFORMATION
  Report Type: Spontaneous
  Country: DE (occurrence: DE)
  Receive Date: 20210930
  Receipt Date: 20210930
  Transmission Date: 20211014
  Serious: Yes (Other)
  Sender: FDA-Public Use
  Company Number: DE-JNJFOC-20210945086

PATIENT
  Age: 71 Year
  Sex: Female

DRUGS (2)
  1. CLINDAMYCIN. [Concomitant]
     Active Substance: CLINDAMYCIN
     Dates: start: 202101
  2. TRACLEER [Suspect]
     Active Substance: BOSENTAN
     Indication: CREST SYNDROME
     Route: 048
     Dates: start: 202010

REACTIONS (2)
  - Dyspnoea exertional [Unknown]
  - Swelling face [Unknown]

NARRATIVE: CASE EVENT DATE: 20210226
